FAERS Safety Report 10660943 (Version 5)
Quarter: 2015Q2

REPORT INFORMATION
  Report Type: Report from Study
  Country: FR (occurrence: FR)
  Receive Date: 20141218
  Receipt Date: 20150413
  Transmission Date: 20150821
  Serious: Yes (Hospitalization)
  Sender: FDA-Public Use
  Company Number: FR-ROCHE-1507992

PATIENT
  Age: 68 Year
  Sex: Female
  Weight: 71 kg

DRUGS (20)
  1. DIOSMECTITE [Concomitant]
     Active Substance: MONTMORILLONITE
     Indication: DIARRHOEA
     Route: 048
     Dates: start: 20140701
  2. COBIMETINIB [Suspect]
     Active Substance: COBIMETINIB
     Indication: METASTATIC MALIGNANT MELANOMA
     Route: 048
     Dates: start: 20140110, end: 20141210
  3. DIFFU K [Concomitant]
     Active Substance: POTASSIUM CHLORIDE
     Indication: HYPOKALAEMIA
     Route: 048
     Dates: start: 20140110
  4. PRIMPERAN [Concomitant]
     Active Substance: METOCLOPRAMIDE HYDROCHLORIDE
     Indication: NAUSEA
     Route: 048
     Dates: start: 20140404
  5. INEXIUM [Concomitant]
     Active Substance: ESOMEPRAZOLE
     Dosage: INDICATION: REFLUX PROPHYLAXIA
     Route: 048
     Dates: start: 201401, end: 201402
  6. LOPERAMIDE [Concomitant]
     Active Substance: LOPERAMIDE
     Indication: GASTROENTERITIS
     Dosage: SELECT IF ONGOING=NO
     Route: 048
     Dates: start: 20141204, end: 20141207
  7. VEMURAFENIB [Suspect]
     Active Substance: VEMURAFENIB
     Indication: METASTATIC MALIGNANT MELANOMA
     Route: 048
     Dates: start: 20140110, end: 20141210
  8. ORAMORPH SR SUSTAINED RELEASE [Concomitant]
     Active Substance: MORPHINE SULFATE
     Indication: GROIN PAIN
     Route: 048
     Dates: start: 20140110
  9. LOPERAMIDE [Concomitant]
     Active Substance: LOPERAMIDE
     Indication: DIARRHOEA
     Dosage: SELECT IF ONGOING=YES
     Route: 048
     Dates: start: 20140701
  10. ALPRAZOLAM. [Concomitant]
     Active Substance: ALPRAZOLAM
     Indication: ANXIETY
     Route: 048
     Dates: start: 2009
  11. LEVOTHYROX [Concomitant]
     Active Substance: LEVOTHYROXINE
     Indication: HYPOTHYROIDISM
     Route: 048
     Dates: start: 1999
  12. OXYCONTIN [Concomitant]
     Active Substance: OXYCODONE HYDROCHLORIDE
     Indication: GROIN PAIN
     Route: 048
     Dates: start: 20131113, end: 201402
  13. LYRICA [Concomitant]
     Active Substance: PREGABALIN
     Indication: GROIN PAIN
     Route: 048
     Dates: start: 20131210
  14. DEXERYL (FRANCE) [Concomitant]
     Active Substance: GLYCERIN\PARAFFIN
     Indication: XEROSIS
  15. MAALOX (ALUMINUM HYDROXIDE/MAGNESIUM HYDROXIDE/SIMETHICONE) [Concomitant]
     Indication: NAUSEA
     Dosage: SELECT IF ONGOING=YES
     Route: 048
     Dates: start: 20140404
  16. ULTRALEVURE [Concomitant]
     Active Substance: SACCHAROMYCES CEREVISIAE
     Indication: GASTROENTERITIS
     Dosage: SELECT IF ONGOING=NO
     Route: 048
     Dates: start: 20141204, end: 20141207
  17. ISOPTIN [Concomitant]
     Active Substance: VERAPAMIL HYDROCHLORIDE
     Indication: HYPERTENSION
     Route: 048
     Dates: start: 2010
  18. DOLIPRANE [Concomitant]
     Active Substance: ACETAMINOPHEN
     Indication: GROIN PAIN
     Route: 048
     Dates: start: 20131212
  19. INNOHEP [Concomitant]
     Active Substance: TINZAPARIN SODIUM
     Indication: PULMONARY EMBOLISM
     Route: 058
     Dates: start: 20131104
  20. DEXERYL (FRANCE) [Concomitant]
     Active Substance: GLYCERIN\PARAFFIN
     Indication: RASH
     Route: 061
     Dates: start: 20140124

REACTIONS (1)
  - Electrocardiogram T wave abnormal [Recovered/Resolved]

NARRATIVE: CASE EVENT DATE: 20141210
